FAERS Safety Report 9051517 (Version 1)
Quarter: 2013Q1

REPORT INFORMATION
  Report Type: Spontaneous
  Country: NL (occurrence: NL)
  Receive Date: 20130207
  Receipt Date: 20130207
  Transmission Date: 20140127
  Serious: Yes (Other)
  Sender: FDA-Public Use
  Company Number: NL-AMGEN-NLDSP2013008094

PATIENT
  Age: 9 Year
  Sex: Male

DRUGS (2)
  1. ENBREL [Suspect]
     Indication: JUVENILE IDIOPATHIC ARTHRITIS
     Dosage: 0.4 MG/KG, MAX 25MG PER DOSE, 3-4 DAYS INTERVAL BETWEEN DOSES
     Dates: start: 2009, end: 201201
  2. ENBREL [Suspect]
     Dosage: UNK
     Dates: start: 201301

REACTIONS (1)
  - Tonsillar disorder [Recovered/Resolved]
